FAERS Safety Report 13972097 (Version 1)
Quarter: 2017Q3

REPORT INFORMATION
  Report Type: Spontaneous
  Country: US (occurrence: None)
  Receive Date: 20170914
  Receipt Date: 20170914
  Transmission Date: 20171128
  Serious: Yes (Hospitalization)
  Sender: FDA-Public Use
  Company Number: None

PATIENT
  Age: 45 Year
  Sex: Female

DRUGS (1)
  1. TACROLIMUS 0.5MG ACCORD [Suspect]
     Active Substance: TACROLIMUS
     Indication: STEM CELL TRANSPLANT
     Route: 048
     Dates: start: 201702

REACTIONS (3)
  - Diarrhoea [None]
  - Gastrointestinal infection [None]
  - Urinary tract infection [None]

NARRATIVE: CASE EVENT DATE: 20170822
